FAERS Safety Report 9755256 (Version 1)
Quarter: 2013Q4

REPORT INFORMATION
  Report Type: Spontaneous
  Country: US (occurrence: US)
  Receive Date: 20131213
  Receipt Date: 20131213
  Transmission Date: 20140711
  Serious: No
  Sender: FDA-Public Use
  Company Number: US-GLAXOSMITHKLINE-A1014913A

PATIENT
  Age: 43 Year
  Sex: Female
  Weight: 75 kg

DRUGS (1)
  1. EQUATE NTS 21MG, CLEAR [Suspect]
     Dates: start: 20130304, end: 20130305

REACTIONS (1)
  - Application site pruritus [Recovered/Resolved]
